FAERS Safety Report 19468422 (Version 1)
Quarter: 2021Q2

REPORT INFORMATION
  Report Type: Spontaneous
  Country: CN (occurrence: CN)
  Receive Date: 20210628
  Receipt Date: 20210628
  Transmission Date: 20210717
  Serious: Yes (Other)
  Sender: FDA-Public Use
  Company Number: CN-ROCHE-2855654

PATIENT
  Age: 71 Year
  Sex: Male

DRUGS (8)
  1. HERCEPTIN [Suspect]
     Active Substance: TRASTUZUMAB
     Indication: GASTRIC CANCER
     Dosage: ON DAY 1, 3 WEEKS AS A CYCLE
     Route: 065
     Dates: start: 20200117
  2. PACLITAXEL ALBUMIN [Concomitant]
     Active Substance: PACLITAXEL
     Indication: GASTRIC CANCER
     Dosage: ON DAY 1 AND 8
     Dates: start: 20200610
  3. HERCEPTIN [Suspect]
     Active Substance: TRASTUZUMAB
     Dosage: 2MG/KG (FIRST DOSE 4MG/KG)
     Route: 065
     Dates: start: 20200610
  4. TEGAFUR [Concomitant]
     Active Substance: TEGAFUR
     Indication: GASTRIC CANCER
     Dosage: 3 WEEKS AS A CYCLE
     Dates: start: 20200117
  5. TEGAFUR [Concomitant]
     Active Substance: TEGAFUR
     Dosage: 2 CAPSULES AND THEN 3 CAPSULES PER DAY, ON DAY 1?14, 3 WEEKS AS A CYCLE
     Route: 048
  6. PACLITAXEL ALBUMIN [Concomitant]
     Active Substance: PACLITAXEL
     Dosage: ON 05/AUG/2020, 26/AUG/2020, 16/SEP/2020, 13/OCT/2020 AND 03/NOV/2020, ON DAY 1 AND 8
  7. HERCEPTIN [Suspect]
     Active Substance: TRASTUZUMAB
     Dosage: ON , 26/AUG/2020, 16/SEP/2020, 13/OCT/2020 AND 03/NOV/2020
     Route: 065
     Dates: start: 20200805
  8. APATINIB MESYLATE [Concomitant]
     Active Substance: APATINIB
     Indication: GASTRIC CANCER
     Route: 048
     Dates: start: 2021

REACTIONS (2)
  - Myelosuppression [Unknown]
  - White blood cell count decreased [Unknown]
